FAERS Safety Report 25670418 (Version 1)
Quarter: 2025Q3

REPORT INFORMATION
  Report Type: Spontaneous
  Country: EU (occurrence: EU)
  Receive Date: 20250812
  Receipt Date: 20250812
  Transmission Date: 20251020
  Serious: Yes (Life-Threatening)
  Sender: FRESENIUS KABI
  Company Number: None

PATIENT
  Age: 68 Year
  Sex: Male

DRUGS (1)
  1. FOSCARNET SODIUM [Suspect]
     Active Substance: FOSCARNET SODIUM
     Indication: Product used for unknown indication
     Route: 042
     Dates: start: 20250725, end: 20250730

REACTIONS (4)
  - Pancytopenia [Unknown]
  - Acute kidney injury [Unknown]
  - Hypernatraemia [Unknown]
  - Lethargy [Unknown]

NARRATIVE: CASE EVENT DATE: 20250728
